FAERS Safety Report 14641411 (Version 5)
Quarter: 2018Q3

REPORT INFORMATION
  Report Type: Spontaneous
  Country: US (occurrence: US)
  Receive Date: 20180315
  Receipt Date: 20180823
  Transmission Date: 20181010
  Serious: Yes (Other)
  Sender: FDA-Public Use
  Company Number: US-ELI_LILLY_AND_COMPANY-US201803002739

PATIENT
  Age: 87 Year
  Sex: Female

DRUGS (10)
  1. LUTEIN                             /01638501/ [Concomitant]
     Active Substance: LUTEIN
  2. ENALAPRIL [Concomitant]
     Active Substance: ENALAPRIL
  3. TALTZ [Suspect]
     Active Substance: IXEKIZUMAB
     Indication: PSORIASIS
     Dosage: 80 MG, UNKNOWN
     Route: 058
     Dates: start: 20171201, end: 20180305
  4. FISH OIL [Concomitant]
     Active Substance: FISH OIL
  5. SERTLINE [Concomitant]
  6. SIMVASTATIN. [Concomitant]
     Active Substance: SIMVASTATIN
  7. NOVOLOG [Concomitant]
     Active Substance: INSULIN ASPART
  8. MAGNESIUM [Concomitant]
     Active Substance: MAGNESIUM
  9. LAFOL [Concomitant]
  10. ASPIRIN                            /00002701/ [Concomitant]
     Active Substance: ASPIRIN

REACTIONS (2)
  - Nodular melanoma [Unknown]
  - Hepatic cancer [Unknown]

NARRATIVE: CASE EVENT DATE: 20180305
